FAERS Safety Report 7907870-0 (Version None)
Quarter: 2011Q4

REPORT INFORMATION
  Report Type: 
  Country: None (occurrence: None)
  Receive Date: 20111110
  Receipt Date: 20090513
  Transmission Date: 20120403
  Serious: Yes (Other)
  Sender: FDA-Public Use
  Company Number: US-BAYER-200832123NA

PATIENT
  Sex: Female
  Weight: 66 kg

DRUGS (12)
  1. OPTIMARK [Suspect]
  2. ELOCON [Concomitant]
  3. MULTIHANCE [Suspect]
  4. OMNISCAN [Suspect]
  5. PROHANCE [Suspect]
  6. PREMARIN [Concomitant]
  7. MAGNEVIST [Suspect]
     Indication: NUCLEAR MAGNETIC RESONANCE IMAGING
     Dosage: UNK UNK, ONCE
     Dates: start: 19911030, end: 19911030
  8. MAXZIDE [Concomitant]
  9. VICODIN [Concomitant]
  10. ENALAPRIL MALEATE [Concomitant]
  11. KEFLEX [Concomitant]
  12. CORTISONE ACETATE [Concomitant]

REACTIONS (12)
  - INJURY [None]
  - ERYTHEMA [None]
  - INFLAMMATION [None]
  - PRURITUS [None]
  - INDURATION [None]
  - SKIN HYPERTROPHY [None]
  - SKIN HYPERPIGMENTATION [None]
  - RASH ERYTHEMATOUS [None]
  - EXFOLIATIVE RASH [None]
  - OEDEMA PERIPHERAL [None]
  - PAIN [None]
  - NEPHROGENIC SYSTEMIC FIBROSIS [None]
